FAERS Safety Report 7730086-8 (Version None)
Quarter: 2011Q3

REPORT INFORMATION
  Report Type: 
  Country: None (occurrence: None)
  Receive Date: 20110906
  Receipt Date: 20110830
  Transmission Date: 20111222
  Serious: Yes (Disabling)
  Sender: FDA-Public Use
  Company Number: PHHY2011NL77281

PATIENT
  Sex: Female

DRUGS (9)
  1. OXYCONTIN [Concomitant]
     Dosage: 5 MG, UNK
  2. ZOMETA [Suspect]
     Dosage: 4 MG/ 5ML, ONCE 42 DAYS
     Dates: start: 20110830
  3. PANTOPRAZOLE [Concomitant]
     Dosage: 40 MG, UNK
  4. DULCOLAX [Concomitant]
     Dosage: 10 MG, UNK
  5. DEXAMETHASONE [Concomitant]
     Dosage: 4 MG, UNK
  6. MAGNESIUM HYDROXIDE [Concomitant]
  7. FRAXIPARINE [Concomitant]
     Dosage: 2850 IU, UNK
  8. ZOMETA [Suspect]
     Indication: BREAST CANCER METASTATIC
     Dosage: 4 MG/ 5ML, ONCE 42 DAYS
     Dates: start: 20090902
  9. ZOMETA [Suspect]
     Dosage: 4 MG/ 5ML, ONCE 42 DAYS
     Dates: start: 20110719

REACTIONS (1)
  - MUSCULAR WEAKNESS [None]
